FAERS Safety Report 9074397 (Version 1)
Quarter: 2013Q1

REPORT INFORMATION
  Report Type: Report from Study
  Country: US (occurrence: US)
  Receive Date: 20130129
  Receipt Date: 20130129
  Transmission Date: 20140127
  Serious: No
  Sender: FDA-Public Use
  Company Number: US-ABBOTT-12P-163-0920970-00

PATIENT
  Sex: Male

DRUGS (1)
  1. HUMIRA 40 MG/0.8 ML PEN [Suspect]
     Indication: PSORIATIC ARTHROPATHY
     Dates: start: 201204

REACTIONS (15)
  - Papule [Unknown]
  - Pruritus [Unknown]
  - Nausea [Unknown]
  - Headache [Unknown]
  - Increased upper airway secretion [Unknown]
  - Chest pain [Unknown]
  - Paraesthesia [Unknown]
  - Abdominal pain [Unknown]
  - Anxiety [Unknown]
  - Feeling abnormal [Unknown]
  - Chromaturia [Unknown]
  - Urine odour abnormal [Unknown]
  - Arthralgia [Unknown]
  - Rhinorrhoea [Unknown]
  - Oropharyngeal pain [Unknown]
